FAERS Safety Report 5588669-X (Version None)
Quarter: 2008Q1

REPORT INFORMATION
  Report Type: 
  Country: None (occurrence: None)
  Receive Date: 20080111
  Receipt Date: 20080102
  Transmission Date: 20080703
  Serious: Yes (Hospitalization, Disabling)
  Sender: FDA-Public Use
  Company Number: US-PFIZER INC-2008000221

PATIENT
  Sex: Female

DRUGS (5)
  1. AROMASIN [Suspect]
     Indication: BREAST CANCER
     Route: 048
  2. TAMOXIFEN [Suspect]
     Indication: BREAST CANCER
     Route: 048
  3. ATENOLOL [Concomitant]
     Route: 048
  4. HYDROCHLOROTHIAZIDE [Concomitant]
     Route: 048
  5. VYTORIN [Concomitant]
     Dosage: TEXT:10/20 MG
     Route: 048

REACTIONS (2)
  - CORONARY ARTERY DISEASE [None]
  - PRESYNCOPE [None]
